FAERS Safety Report 24701161 (Version 2)
Quarter: 2025Q1

REPORT INFORMATION
  Report Type: Spontaneous
  Country: US (occurrence: US)
  Receive Date: 20241205
  Receipt Date: 20250318
  Transmission Date: 20250409
  Serious: No
  Sender: CSL BEHRING
  Company Number: US-BEH-2024186226

PATIENT
  Sex: Female

DRUGS (6)
  1. HIZENTRA [Suspect]
     Active Substance: HUMAN IMMUNOGLOBULIN G
     Indication: Hypogammaglobulinaemia
     Dosage: 2 GM/10ML: WITHDRAW 30ML INTO A 50ML SYRINGE. INFUSE 6 GM (30ML) SUBCUTANEOUSLY ONCE A WEEK VIA FREE
     Route: 058
     Dates: start: 20230218
  2. HIZENTRA [Suspect]
     Active Substance: HUMAN IMMUNOGLOBULIN G
     Dosage: 4 GM/20ML: WITHDRAW 30ML INTO A 50ML SYRINGE. INFUSE 6 GM (30ML) SUBCUTANEOUSLY ONCE A WEEK VIA FREE
     Route: 058
     Dates: start: 20230218
  3. HIZENTRA [Suspect]
     Active Substance: HUMAN IMMUNOGLOBULIN G
     Dosage: 10 G/50ML QW, ONCE A WEEK VIA FREEDDOM PUMP
     Route: 058
     Dates: start: 20241120
  4. ADDERALL [Concomitant]
     Active Substance: AMPHETAMINE ASPARTATE\AMPHETAMINE SULFATE\DEXTROAMPHETAMINE SACCHARATE\DEXTROAMPHETAMINE SULFATE
  5. HUMIRA [Concomitant]
     Active Substance: ADALIMUMAB
  6. LIDOCAINE\PRILOCAINE [Concomitant]
     Active Substance: LIDOCAINE\PRILOCAINE

REACTIONS (4)
  - Vestibular migraine [Not Recovered/Not Resolved]
  - Skin irritation [Recovered/Resolved]
  - Therapy interrupted [Not Recovered/Not Resolved]
  - Insurance issue [Unknown]
